FAERS Safety Report 8103612-7 (Version None)
Quarter: 2012Q1

REPORT INFORMATION
  Report Type: 
  Country: None (occurrence: None)
  Receive Date: 20120201
  Receipt Date: 20120117
  Transmission Date: 20120608
  Serious: Yes (Hospitalization)
  Sender: FDA-Public Use
  Company Number: US-WATSON-2012-00632

PATIENT
  Sex: Female

DRUGS (2)
  1. LUNESTA [Suspect]
     Indication: INSOMNIA
     Dosage: 3 MG, QHS
     Route: 048
     Dates: start: 20090101
  2. HYDROCODONE BITARTRATE/ACETAMINOPHEN 7.5/500 (WATSON LABORATORIES) [Suspect]
     Indication: PAIN
     Dosage: Q 4 HRS
     Route: 048
     Dates: start: 20111206

REACTIONS (5)
  - DEHYDRATION [None]
  - FATIGUE [None]
  - DYSPNOEA [None]
  - HALLUCINATION [None]
  - PNEUMONIA [None]
